FAERS Safety Report 24762742 (Version 1)
Quarter: 2024Q4

REPORT INFORMATION
  Report Type: Spontaneous
  Country: GB (occurrence: GB)
  Receive Date: 20241222
  Receipt Date: 20241222
  Transmission Date: 20250114
  Serious: Yes (Other)
  Sender: AUROBINDO
  Company Number: GB-MHRA-MED-202412090314267120-YMFNR

PATIENT
  Age: 68 Year
  Sex: Female

DRUGS (1)
  1. METRONIDAZOLE [Suspect]
     Active Substance: METRONIDAZOLE
     Indication: Diverticulitis
     Dosage: UNK
     Route: 065

REACTIONS (2)
  - Lip swelling [Unknown]
  - Medication error [Unknown]

NARRATIVE: CASE EVENT DATE: 20241209
